FAERS Safety Report 16980567 (Version 4)
Quarter: 2020Q1

REPORT INFORMATION
  Report Type: Spontaneous
  Country: ES (occurrence: ES)
  Receive Date: 20191031
  Receipt Date: 20200218
  Transmission Date: 20200409
  Serious: Yes (Hospitalization)
  Sender: FDA-Public Use
  Company Number: ES-CELGENEUS-ESP-20191008890

PATIENT
  Age: 73 Year
  Sex: Female
  Weight: 58 kg

DRUGS (17)
  1. PRACINOSTAT [Concomitant]
     Active Substance: PRACINOSTAT
     Indication: ACUTE MYELOID LEUKAEMIA
     Dosage: 60 MILLIGRAM
     Route: 048
     Dates: start: 20190704
  2. PRACINOSTAT [Concomitant]
     Active Substance: PRACINOSTAT
     Dosage: 45 MILLIGRAM
     Route: 048
     Dates: start: 20191125
  3. ALOPURINOL [Concomitant]
     Active Substance: ALLOPURINOL
     Indication: PROPHYLAXIS
     Dosage: 300 MILLIGRAM
     Route: 048
     Dates: start: 20190625
  4. RANITIDINE. [Concomitant]
     Active Substance: RANITIDINE
     Indication: PROPHYLAXIS AGAINST GASTROINTESTINAL ULCER
     Dosage: 300 MILLIGRAM
     Route: 048
     Dates: start: 20190702
  5. LORAZEPAM. [Concomitant]
     Active Substance: LORAZEPAM
     Indication: HAEMORRHOIDS
  6. VITAMIN K [Concomitant]
     Active Substance: PHYTONADIONE
     Indication: PRODUCT USED FOR UNKNOWN INDICATION
     Dosage: 10 MILLIGRAM
     Route: 041
     Dates: start: 20190708
  7. LORAZEPAM. [Concomitant]
     Active Substance: LORAZEPAM
     Indication: FEBRILE NEUTROPENIA
     Route: 048
     Dates: start: 20191021, end: 201910
  8. PREDNISONE. [Concomitant]
     Active Substance: PREDNISONE
     Indication: PLATELET TRANSFUSION
     Dosage: 10 MILLIGRAM
     Route: 048
     Dates: start: 20190924
  9. GRANISETRON [Concomitant]
     Active Substance: GRANISETRON
     Indication: PROPHYLAXIS OF NAUSEA AND VOMITING
     Dosage: 2 MILLIGRAM
     Route: 048
     Dates: start: 20190709
  10. OMEPRAZOLE. [Concomitant]
     Active Substance: OMEPRAZOLE
     Indication: PROPHYLAXIS
     Dosage: 40 MILLIGRAM
     Route: 041
     Dates: start: 20190625
  11. AZACITIDINE. [Suspect]
     Active Substance: AZACITIDINE
     Dosage: 75 MILLIGRAM/SQ. METER
     Route: 058
     Dates: start: 20191125
  12. PRACINOSTAT [Concomitant]
     Active Substance: PRACINOSTAT
     Dosage: 45 MILLIGRAM
     Route: 048
     Dates: start: 20190704, end: 20191011
  13. AZACITIDINE. [Suspect]
     Active Substance: AZACITIDINE
     Indication: ACUTE MYELOID LEUKAEMIA
     Dosage: 75 MILLIGRAM/SQ. METER
     Route: 058
     Dates: start: 20190704, end: 20191008
  14. METOCLOPRAMIDE. [Concomitant]
     Active Substance: METOCLOPRAMIDE
     Indication: PROPHYLAXIS OF NAUSEA AND VOMITING
     Dosage: 30 MILLIGRAM
     Route: 041
     Dates: start: 20190625
  15. LORAZEPAM. [Concomitant]
     Active Substance: LORAZEPAM
     Indication: PROPHYLAXIS
     Route: 048
     Dates: start: 20190628
  16. HYDROXYUREA. [Concomitant]
     Active Substance: HYDROXYUREA
     Indication: ACUTE MYELOID LEUKAEMIA
     Dosage: 2000 MILLIGRAM
     Route: 041
     Dates: start: 20190625
  17. MEGESTROL ACETATE. [Concomitant]
     Active Substance: MEGESTROL ACETATE
     Indication: DECREASED APPETITE
     Dosage: 1 DOSAGE FORMS
     Route: 048

REACTIONS (2)
  - Febrile neutropenia [Recovered/Resolved]
  - Haemorrhoids [Not Recovered/Not Resolved]

NARRATIVE: CASE EVENT DATE: 20191013
